FAERS Safety Report 23667892 (Version 1)
Quarter: 2024Q1

REPORT INFORMATION
  Report Type: Spontaneous
  Country: BR (occurrence: BR)
  Receive Date: 20240325
  Receipt Date: 20240325
  Transmission Date: 20240410
  Serious: Yes (Hospitalization)
  Sender: FDA-Public Use
  Company Number: BR-UCBSA-2024013687

PATIENT
  Sex: Female

DRUGS (6)
  1. KEPPRA [Suspect]
     Active Substance: LEVETIRACETAM
     Indication: Seizure cluster
     Dosage: 2 TABLETS OF 250 MG
  2. KEPPRA [Suspect]
     Active Substance: LEVETIRACETAM
     Dosage: 1500 MILLIGRAM, 2X/DAY (BID)
  3. KEPPRA [Suspect]
     Active Substance: LEVETIRACETAM
     Dosage: 6 TAB OF 250 IN MORNING AND 5 TAB OF 250 IN NIGHT
  4. KEPPRA [Suspect]
     Active Substance: LEVETIRACETAM
     Dosage: 1500 MILLIGRAM, 2X/DAY (BID) 2 TAB 750 MORNING AND EVENING
  5. ANTARA [LEVETIRACETAM] [Concomitant]
     Indication: Product used for unknown indication
     Dosage: UNK
  6. HIDANTAL [PHENYTOIN] [Concomitant]
     Indication: Product used for unknown indication
     Dosage: UNK

REACTIONS (10)
  - Illness [Unknown]
  - Dysphonia [Unknown]
  - Tachyphrenia [Unknown]
  - Anticonvulsant drug level increased [Unknown]
  - Toxicity to various agents [Unknown]
  - Inability to afford medication [Unknown]
  - Therapy interrupted [Unknown]
  - Drug ineffective for unapproved indication [Unknown]
  - Therapeutic product effect incomplete [Unknown]
  - Product use issue [Unknown]
